FAERS Safety Report 5786395-5 (Version None)
Quarter: 2008Q2

REPORT INFORMATION
  Report Type: 
  Country: None (occurrence: None)
  Receive Date: 20080624
  Receipt Date: 20080612
  Transmission Date: 20081010
  Serious: Yes (Other)
  Sender: FDA-Public Use
  Company Number: US-ELI_LILLY_AND_COMPANY-US200806003293

PATIENT
  Sex: Female

DRUGS (2)
  1. ILETIN [Suspect]
     Dates: start: 19750101
  2. NOVOLOG [Concomitant]

REACTIONS (2)
  - PANCREAS TRANSPLANT [None]
  - RENAL TRANSPLANT [None]
